FAERS Safety Report 13486949 (Version 2)
Quarter: 2017Q2

REPORT INFORMATION
  Report Type: Report from Study
  Country: US (occurrence: US)
  Receive Date: 20170426
  Receipt Date: 20170427
  Transmission Date: 20170830
  Serious: Yes (Other)
  Sender: FDA-Public Use
  Company Number: US-ASTRAZENECA-2017SE40665

PATIENT
  Age: 25234 Day
  Sex: Male
  Weight: 59 kg

DRUGS (14)
  1. SPIRIVA [Concomitant]
     Active Substance: TIOTROPIUM BROMIDE MONOHYDRATE
     Indication: CHRONIC OBSTRUCTIVE PULMONARY DISEASE
     Dosage: DAILY
     Route: 048
  2. PREDNISONE. [Concomitant]
     Active Substance: PREDNISONE
  3. SYMBICORT [Suspect]
     Active Substance: BUDESONIDE\FORMOTEROL FUMARATE DIHYDRATE
     Indication: ASTHMA
     Dosage: 160/4.5 2 PUFFS TWO TIMES A DAY
     Route: 055
     Dates: start: 20170314, end: 20170414
  4. LISINOPRIL. [Suspect]
     Active Substance: LISINOPRIL
     Indication: HEART RATE IRREGULAR
     Route: 048
  5. ALBUTEROL. [Concomitant]
     Active Substance: ALBUTEROL
  6. CLOPIDOGREL [Concomitant]
     Active Substance: CLOPIDOGREL BISULFATE
     Indication: COAGULOPATHY
     Dosage: 75.0MG UNKNOWN
     Route: 048
  7. OXYGEN. [Concomitant]
     Active Substance: OXYGEN
  8. FAMOTIDINE. [Concomitant]
     Active Substance: FAMOTIDINE
     Indication: GASTROOESOPHAGEAL REFLUX DISEASE
     Route: 048
  9. VITAMINS NOS [Concomitant]
     Active Substance: VITAMINS
     Dosage: AS NEEDED
     Route: 048
  10. SPIRIVA [Concomitant]
     Active Substance: TIOTROPIUM BROMIDE MONOHYDRATE
     Indication: ASTHMA
     Dosage: DAILY
     Route: 048
  11. LEVOCETIRIZINE [Concomitant]
     Active Substance: LEVOCETIRIZINE
  12. MONTELUKAST [Concomitant]
     Active Substance: MONTELUKAST SODIUM
     Indication: MULTIPLE ALLERGIES
     Route: 048
  13. SYMBICORT [Suspect]
     Active Substance: BUDESONIDE\FORMOTEROL FUMARATE DIHYDRATE
     Indication: CHRONIC OBSTRUCTIVE PULMONARY DISEASE
     Dosage: 160/4.5 2 PUFFS TWO TIMES A DAY
     Route: 055
     Dates: start: 20170314, end: 20170414
  14. ASPIRIN. [Concomitant]
     Active Substance: ASPIRIN
     Dosage: AS NEEDED
     Route: 048

REACTIONS (6)
  - Insurance issue [Unknown]
  - Urinary incontinence [Unknown]
  - Hypersensitivity [Unknown]
  - Asthma [Recovered/Resolved]
  - Heart rate increased [Recovered/Resolved]
  - Drug dose omission [Unknown]

NARRATIVE: CASE EVENT DATE: 20170414
